FAERS Safety Report 18918104 (Version 1)
Quarter: 2021Q1

REPORT INFORMATION
  Report Type: Spontaneous
  Country: CN (occurrence: CN)
  Receive Date: 20210220
  Receipt Date: 20210220
  Transmission Date: 20210420
  Serious: Yes (Hospitalization)
  Sender: FDA-Public Use
  Company Number: CN-ROCHE-2772769

PATIENT
  Age: 41 Year
  Sex: Female
  Weight: 33 kg

DRUGS (8)
  1. LANSOPRAZOLE. [Concomitant]
     Active Substance: LANSOPRAZOLE
     Route: 041
     Dates: start: 20210127, end: 20210127
  2. TISLELIZUMAB [Suspect]
     Active Substance: TISLELIZUMAB
     Indication: CERVIX CARCINOMA
     Route: 041
     Dates: start: 20210127, end: 20210127
  3. SHEN MAI ZHU SHE YE [Concomitant]
     Active Substance: HERBALS
     Indication: IMMUNE ENHANCEMENT THERAPY
     Route: 041
     Dates: start: 20210127, end: 20210127
  4. AMIFOSTINE. [Concomitant]
     Active Substance: AMIFOSTINE
     Indication: CERVIX CARCINOMA
     Route: 041
     Dates: start: 20210127, end: 20210127
  5. GLUCOSE [Concomitant]
     Active Substance: DEXTROSE
     Route: 041
     Dates: start: 20210127, end: 20210127
  6. AVASTIN [Suspect]
     Active Substance: BEVACIZUMAB
     Indication: CERVIX CARCINOMA
     Route: 041
     Dates: start: 20210127, end: 20210127
  7. SODIUM CHLORIDE IV [Concomitant]
     Active Substance: SODIUM CHLORIDE
     Route: 041
     Dates: start: 20210127, end: 20210127
  8. GLUTATHIONE [Concomitant]
     Active Substance: GLUTATHIONE
     Route: 041
     Dates: start: 20210127, end: 20210127

REACTIONS (3)
  - Drug reaction with eosinophilia and systemic symptoms [Recovering/Resolving]
  - Intentional product use issue [Unknown]
  - Off label use [Unknown]

NARRATIVE: CASE EVENT DATE: 20210128
